FAERS Safety Report 8590287 (Version 3)
Quarter: 2014Q1

REPORT INFORMATION
  Report Type: Report from Study
  Country: US (occurrence: US)
  Receive Date: 20120601
  Receipt Date: 20140306
  Transmission Date: 20141002
  Serious: Yes (Life-Threatening, Other)
  Sender: FDA-Public Use
  Company Number: US-B.I. PHARMACEUTICALS,INC./RIDGEFIELD-2012-EU-02886GD

PATIENT
  Age: 63 Year
  Sex: Male

DRUGS (4)
  1. PRADAXA [Suspect]
     Indication: ANTICOAGULANT THERAPY
     Dosage: 300 MG
     Route: 048
  2. PRADAXA [Suspect]
     Indication: ATRIAL FIBRILLATION
  3. HEPARIN [Suspect]
     Indication: ANTICOAGULANT THERAPY
     Dosage: ADJUSTED TO ACT}300S
     Route: 042
  4. ASPIRIN [Suspect]
     Indication: PRODUCT USED FOR UNKNOWN INDICATION
     Route: 065

REACTIONS (3)
  - Haemorrhage [Recovered/Resolved]
  - Cardiac tamponade [Unknown]
  - Hypotension [Recovered/Resolved]
